FAERS Safety Report 23875271 (Version 4)
Quarter: 2024Q3

REPORT INFORMATION
  Report Type: Report from Study
  Country: US (occurrence: US)
  Receive Date: 20240520
  Receipt Date: 20240708
  Transmission Date: 20241016
  Serious: Yes (Hospitalization, Other)
  Sender: ALNYLAM PHARMACEUTICALS
  Company Number: US-ALNYLAM PHARMACEUTICALS, INC.-ALN-2024-002781

PATIENT

DRUGS (1)
  1. GIVLAARI [Suspect]
     Active Substance: GIVOSIRAN SODIUM
     Indication: Porphyria acute
     Dosage: 189 MILLIGRAM (EVERY 28 DAYS)
     Route: 058
     Dates: start: 20201223, end: 20201223

REACTIONS (16)
  - Liver function test increased [Unknown]
  - Chest pain [Unknown]
  - Dyspnoea [Unknown]
  - Renal function test abnormal [Unknown]
  - Blood creatinine increased [Unknown]
  - Porphyria acute [Not Recovered/Not Resolved]
  - Immune system disorder [Unknown]
  - Peripheral swelling [Unknown]
  - Abdominal distension [Unknown]
  - Fatigue [Unknown]
  - Feeling abnormal [Unknown]
  - Intentional dose omission [Unknown]
  - Off label use [Unknown]
  - Sinusitis [Unknown]
  - Weight decreased [Unknown]
  - General physical health deterioration [Unknown]

NARRATIVE: CASE EVENT DATE: 20240508
